FAERS Safety Report 9262423 (Version 1)
Quarter: 2013Q2

REPORT INFORMATION
  Report Type: Spontaneous
  Country: US (occurrence: US)
  Receive Date: 20130430
  Receipt Date: 20130430
  Transmission Date: 20140414
  Serious: Yes (Hospitalization)
  Sender: FDA-Public Use
  Company Number: US-AMGEN-USASP2013028818

PATIENT
  Age: 82 Year
  Sex: Male

DRUGS (4)
  1. SENSIPAR [Suspect]
     Indication: PRODUCT USED FOR UNKNOWN INDICATION
     Dosage: UNK UNK, BID
  2. ASPIRIN [Concomitant]
  3. TRAZODONE [Concomitant]
  4. LIPITOR [Concomitant]

REACTIONS (2)
  - Blood calcium increased [Unknown]
  - Wrong technique in drug usage process [Unknown]
